FAERS Safety Report 15152848 (Version 1)
Quarter: 2018Q3

REPORT INFORMATION
  Report Type: Report from Study
  Country: US (occurrence: US)
  Receive Date: 20180717
  Receipt Date: 20180717
  Transmission Date: 20181010
  Serious: Yes (Other)
  Sender: FDA-Public Use
  Company Number: US-TEVA-2018-US-924846

PATIENT
  Age: 70 Year
  Sex: Female

DRUGS (1)
  1. COPAXONE [Suspect]
     Active Substance: GLATIRAMER ACETATE
     Indication: MULTIPLE SCLEROSIS
     Route: 058
     Dates: start: 20141229

REACTIONS (11)
  - Paraesthesia [Unknown]
  - Inappropriate schedule of drug administration [Unknown]
  - Rash pruritic [Unknown]
  - Choking sensation [Unknown]
  - Agitation [Unknown]
  - Fatigue [Unknown]
  - Impatience [Unknown]
  - Respiratory disorder [Unknown]
  - Multiple sclerosis relapse [Unknown]
  - Dizziness [Unknown]
  - Hyperhidrosis [Unknown]

NARRATIVE: CASE EVENT DATE: 201805
